FAERS Safety Report 5209110-2 (Version None)
Quarter: 2007Q1

REPORT INFORMATION
  Report Type: 
  Country: None (occurrence: None)
  Receive Date: 20070116
  Receipt Date: 20070108
  Transmission Date: 20070707
  Serious: Yes (Hospitalization, Other)
  Sender: FDA-Public Use
  Company Number: US-AVENTIS-200619012US

PATIENT
  Sex: Female
  Weight: 46 kg

DRUGS (12)
  1. LANTUS [Suspect]
     Dates: start: 20060801
  2. LANTUS [Suspect]
     Dates: start: 20060804
  3. LANTUS [Suspect]
     Indication: NEUROPATHY
     Dates: start: 20060801
  4. LANTUS [Suspect]
     Dates: start: 20060804
  5. TOPROL-XL [Concomitant]
  6. VITAMINS [Concomitant]
     Dosage: DOSE: UNK
  7. THIAMINE HCL [Concomitant]
     Dosage: DOSE: UNK
  8. VITAMIN B6 [Concomitant]
     Dosage: DOSE: UNK
  9. HUMALOG [Concomitant]
     Dosage: DOSE: UNK
  10. ULTRAM [Concomitant]
     Indication: PAIN
     Dosage: DOSE: UNK
  11. STOOL SOFTENER [Concomitant]
     Dosage: DOSE: UNK
  12. ANTIEMETICS AND ANTINAUSEANTS [Concomitant]
     Dosage: DOSE: UNK

REACTIONS (11)
  - ANOREXIA [None]
  - BLOOD GLUCOSE DECREASED [None]
  - BLOOD GLUCOSE INCREASED [None]
  - CONSTIPATION [None]
  - HEART RATE INCREASED [None]
  - HOSPITALISATION [None]
  - HYPOTENSION [None]
  - NAUSEA [None]
  - RASH PAPULAR [None]
  - TREATMENT NONCOMPLIANCE [None]
  - WEIGHT DECREASED [None]
